FAERS Safety Report 16838179 (Version 2)
Quarter: 2019Q3

REPORT INFORMATION
  Report Type: Spontaneous
  Country: CN (occurrence: CN)
  Receive Date: 20190923
  Receipt Date: 20190928
  Transmission Date: 20191005
  Serious: Yes (Death, Hospitalization, Other)
  Sender: FDA-Public Use
  Company Number: CN-ACCORD-155356

PATIENT
  Age: 21 Year
  Sex: Male

DRUGS (5)
  1. CETUXIMAB. [Suspect]
     Active Substance: CETUXIMAB
     Indication: COLORECTAL CANCER METASTATIC
     Dosage: OVER 2 H ON DAY 1 EVERY 2 WEEKS
     Route: 042
     Dates: start: 20161209
  2. OXALIPLATIN. [Suspect]
     Active Substance: OXALIPLATIN
     Indication: COLORECTAL CANCER METASTATIC
     Dosage: ON DAY 1
     Route: 042
     Dates: start: 20161118, end: 20170331
  3. IMMUNOGLOBULINS [Concomitant]
     Indication: HYPOGAMMAGLOBULINAEMIA
     Route: 042
     Dates: start: 1999
  4. IRINOTECAN [Suspect]
     Active Substance: IRINOTECAN
     Indication: COLORECTAL CANCER METASTATIC
     Dosage: OVER 30-90 MIN ON DAY 1
     Route: 042
     Dates: start: 20170331
  5. CAPECITABINE. [Suspect]
     Active Substance: CAPECITABINE
     Indication: COLORECTAL CANCER METASTATIC
     Dosage: TWICE PO DAILY FOR 14 DAYS, WHICH WAS REPEATED EVERY 3 WEEKS
     Route: 048
     Dates: start: 20161118

REACTIONS (5)
  - Hypokalaemia [Not Recovered/Not Resolved]
  - Rash [Unknown]
  - Hypocalcaemia [Not Recovered/Not Resolved]
  - Abdominal pain upper [Unknown]
  - Upper respiratory tract infection [Unknown]

NARRATIVE: CASE EVENT DATE: 20170519
